FAERS Safety Report 7638901-3 (Version None)
Quarter: 2011Q3

REPORT INFORMATION
  Report Type: 
  Country: None (occurrence: None)
  Receive Date: 20110721
  Receipt Date: 20110715
  Transmission Date: 20111222
  Serious: Yes (Death)
  Sender: FDA-Public Use
  Company Number: 2011001822

PATIENT
  Age: 91 Year
  Sex: Female

DRUGS (8)
  1. RYTHMOL [Concomitant]
  2. DOXYCYCLINE [Concomitant]
  3. MIRAPEX [Concomitant]
  4. COMPAZINE [Concomitant]
  5. TARCEVA [Suspect]
     Indication: LUNG NEOPLASM MALIGNANT
     Dosage: 100 MG, UID/QD, ORAL ; 25 MG, /D, ORAL
     Route: 048
     Dates: start: 20110411
  6. TARCEVA [Suspect]
     Indication: LUNG NEOPLASM MALIGNANT
     Dosage: 100 MG, UID/QD, ORAL ; 25 MG, /D, ORAL
     Route: 048
     Dates: start: 20110517
  7. CLEOCIN T [Concomitant]
  8. LOMOTIL (DIPHENOXYLATE HYDROCHLORIDE) [Concomitant]

REACTIONS (3)
  - DIARRHOEA [None]
  - RASH [None]
  - GASTROINTESTINAL HAEMORRHAGE [None]
